FAERS Safety Report 15185628 (Version 1)
Quarter: 2018Q3

REPORT INFORMATION
  Report Type: Report from Study
  Country: US (occurrence: US)
  Receive Date: 20180723
  Receipt Date: 20180723
  Transmission Date: 20181010
  Serious: Yes (Death, Other)
  Sender: FDA-Public Use
  Company Number: US-SHIRE-US201826642

PATIENT

DRUGS (1)
  1. GATTEX [Suspect]
     Active Substance: TEDUGLUTIDE\WATER
     Indication: SHORT-BOWEL SYNDROME
     Dosage: 4.305 MG, 1X/DAY:QD
     Route: 058
     Dates: start: 20180305, end: 20180715

REACTIONS (1)
  - Death [Fatal]

NARRATIVE: CASE EVENT DATE: 20180715
